FAERS Safety Report 24038828 (Version 1)
Quarter: 2024Q3

REPORT INFORMATION
  Report Type: Spontaneous
  Country: US (occurrence: US)
  Receive Date: 20240702
  Receipt Date: 20240702
  Transmission Date: 20241016
  Serious: No
  Sender: ROCHE
  Company Number: US-ROCHE-10000013404

PATIENT
  Sex: Male

DRUGS (1)
  1. ACTEMRA ACTPEN [Suspect]
     Active Substance: TOCILIZUMAB
     Indication: Giant cell arteritis
     Dosage: STRENGTH: 162MG/0.9 M?ROUTE: UNDER THE SKIN?ONGOING
     Route: 058
     Dates: start: 202403

REACTIONS (3)
  - Fatigue [Unknown]
  - Myalgia [Unknown]
  - Muscle spasms [Unknown]
